FAERS Safety Report 14847117 (Version 2)
Quarter: 2018Q3

REPORT INFORMATION
  Report Type: Spontaneous
  Country: US (occurrence: US)
  Receive Date: 20180504
  Receipt Date: 20180918
  Transmission Date: 20181010
  Serious: Yes (Death, Life-Threatening, Hospitalization)
  Sender: FDA-Public Use
  Company Number: US-LPDUSPRD-20180753

PATIENT
  Age: 69 Year
  Sex: Female
  Weight: 70 kg

DRUGS (16)
  1. SERTRALINE [Concomitant]
     Active Substance: SERTRALINE HYDROCHLORIDE
     Dosage: 50 MG (50 MG, 1 IN 1 D)
     Route: 048
  2. RENA?VITE [Concomitant]
     Active Substance: ASCORBIC ACID\BIOTIN\CALCIUM PANTOTHENATE\CYANOCOBALAMIN\FOLIC ACID\NIACINAMIDE\PYRIDOXINE HYDROCHLORIDE\RIBOFLAVIN\THIAMINE MONONITRATE
     Dosage: 0.8 MG (0.8 MG, EVERY MORNING)
     Route: 048
  3. PANTOPRAZOLE [Concomitant]
     Active Substance: PANTOPRAZOLE
     Dosage: 40 MG (40 MG, 1 IN 1 D)
     Route: 048
  4. VENOFER [Suspect]
     Active Substance: IRON SUCROSE
     Dosage: 100 MG
     Route: 065
     Dates: start: 20180217
  5. MINERAL OIL. [Concomitant]
     Active Substance: MINERAL OIL
     Dosage: 1 IN 24 HR
     Route: 054
  6. MIRALAX [Concomitant]
     Active Substance: POLYETHYLENE GLYCOL 3350
     Dosage: 17 GRAM/DOSE (1 IN 24 HR)
     Route: 048
  7. OXAYDO [Concomitant]
     Active Substance: OXYCODONE HYDROCHLORIDE
     Dosage: 12 DFS (2 DFS, 1 IN 4 HR)
     Route: 048
  8. BISCOLAX [Concomitant]
     Active Substance: BISACODYL
     Dosage: 10 MG, 1 IN 24 HR
     Route: 054
  9. DULCOLAX NOS [Concomitant]
     Active Substance: BISACODYL OR DOCUSATE SODIUM
     Dosage: 10 MG (5 MG, 1 IN 24 HR)
     Route: 048
  10. ACETAMINOPHEN. [Concomitant]
     Active Substance: ACETAMINOPHEN
     Dosage: 650 MG, 1 IN 4 HR
     Route: 054
  11. LEVOTHYROXINE. [Concomitant]
     Active Substance: LEVOTHYROXINE
     Dosage: 25 MCG (25 MCG, 1 IN 1 D)
     Route: 048
  12. METOPROLOL TARTRATE. [Concomitant]
     Active Substance: METOPROLOL TARTRATE
     Dosage: 100 MG (50 MG, 2 IN 1 D)
     Route: 048
  13. TYLENOL [Concomitant]
     Active Substance: ACETAMINOPHEN
     Dosage: 2 DOSAGE FORMS,1 IN 4 HR
     Route: 048
  14. MIRCERA [Suspect]
     Active Substance: METHOXY POLYETHYLENE GLYCOL-EPOETIN BETA
     Dosage: (50 MCG, 1 IN 2 WK)
     Route: 040
     Dates: start: 20180217
  15. ASPIRIN. [Concomitant]
     Active Substance: ASPIRIN
     Dosage: 81 MG, 1 IN 1 D
     Route: 048
  16. ATORVASTATIN [Concomitant]
     Active Substance: ATORVASTATIN
     Dosage: 40 MG, AT BED TIME
     Route: 048

REACTIONS (1)
  - Drug hypersensitivity [Fatal]

NARRATIVE: CASE EVENT DATE: 2018
